FAERS Safety Report 14165611 (Version 3)
Quarter: 2017Q4

REPORT INFORMATION
  Report Type: Report from Study
  Country: US (occurrence: US)
  Receive Date: 20171107
  Receipt Date: 20171122
  Transmission Date: 20180321
  Serious: Yes (Death, Other)
  Sender: FDA-Public Use
  Company Number: US-AMGEN-USASL2017167311

PATIENT
  Age: 85 Year
  Sex: Female

DRUGS (1)
  1. PROLIA [Suspect]
     Active Substance: DENOSUMAB
     Indication: PRODUCT USED FOR UNKNOWN INDICATION
     Dosage: UNK UNK, Q6MO
     Route: 065
     Dates: end: 20160930

REACTIONS (4)
  - Arrhythmia supraventricular [Fatal]
  - Coronary artery disease [Fatal]
  - Ventricular arrhythmia [Fatal]
  - Hyperlipidaemia [Fatal]

NARRATIVE: CASE EVENT DATE: 20170927
